FAERS Safety Report 12276890 (Version 1)
Quarter: 2016Q2

REPORT INFORMATION
  Report Type: Spontaneous
  Country: DZ (occurrence: DZ)
  Receive Date: 20160418
  Receipt Date: 20160418
  Transmission Date: 20160815
  Serious: Yes (Other)
  Sender: FDA-Public Use
  Company Number: DZ-GLAXOSMITHKLINE-DZ2016GSK049911

PATIENT
  Age: 2 Year
  Sex: Female

DRUGS (1)
  1. FLIXOTIDE [Suspect]
     Active Substance: FLUTICASONE PROPIONATE
     Indication: ASTHMA
     Dosage: 50 MG, BID
     Route: 048
     Dates: start: 20160331, end: 20160406

REACTIONS (1)
  - Pharyngitis bacterial [Unknown]

NARRATIVE: CASE EVENT DATE: 20160331
